FAERS Safety Report 8017482-9 (Version None)
Quarter: 2011Q4

REPORT INFORMATION
  Report Type: 
  Country: None (occurrence: None)
  Receive Date: 20111128
  Receipt Date: 20111128
  Transmission Date: 20120403
  Serious: Yes (Life-Threatening, Disabling)
  Sender: FDA-Public Use
  Company Number: None

PATIENT
  Age: 56 Year
  Sex: Female
  Weight: 57.1532 kg

DRUGS (1)
  1. SEROQUEL XR [Suspect]

REACTIONS (3)
  - PAIN [None]
  - ABDOMINAL DISTENSION [None]
  - HEPATIC ENZYME INCREASED [None]
